FAERS Safety Report 12328439 (Version 1)
Quarter: 2016Q2

REPORT INFORMATION
  Report Type: Spontaneous
  Country: US (occurrence: US)
  Receive Date: 20160503
  Receipt Date: 20160503
  Transmission Date: 20160815
  Serious: No
  Sender: FDA-Public Use
  Company Number: US-BEH-2014047038

PATIENT
  Sex: Female
  Weight: 93 kg

DRUGS (36)
  1. DIPHENHYDRAMINE. [Concomitant]
     Active Substance: DIPHENHYDRAMINE
  2. PULMICORT TURBUHALER [Concomitant]
     Active Substance: BUDESONIDE
  3. SINGULAIR [Concomitant]
     Active Substance: MONTELUKAST SODIUM
  4. AMOXICILLIN. [Concomitant]
     Active Substance: AMOXICILLIN
  5. CYCLOBENZAPRINE [Concomitant]
     Active Substance: CYCLOBENZAPRINE
  6. OSTEO BI FLEX [Concomitant]
  7. VITAMIN B12 [Concomitant]
     Active Substance: CYANOCOBALAMIN
  8. WELCHOL [Concomitant]
     Active Substance: COLESEVELAM HYDROCHLORIDE
  9. CALCITRATE+VITAMIN D [Concomitant]
  10. TESSALON PEARLS [Concomitant]
  11. BIOTIN [Concomitant]
     Active Substance: BIOTIN
  12. XOPENEX [Concomitant]
     Active Substance: LEVALBUTEROL HYDROCHLORIDE
  13. FOLIC ACID. [Concomitant]
     Active Substance: FOLIC ACID
  14. NAPROXEN. [Concomitant]
     Active Substance: NAPROXEN
  15. ACETYL L-CARNITINE [Concomitant]
     Active Substance: ACETYLCARNITINE
  16. SYMBICORT [Concomitant]
     Active Substance: BUDESONIDE\FORMOTEROL FUMARATE DIHYDRATE
  17. HYOSCYAMINE. [Concomitant]
     Active Substance: HYOSCYAMINE
  18. MULTIVITAMIN [Concomitant]
     Active Substance: VITAMINS
  19. CALCIUM [Concomitant]
     Active Substance: CALCIUM
  20. BENICAR [Concomitant]
     Active Substance: OLMESARTAN MEDOXOMIL
  21. CEFDINIR. [Concomitant]
     Active Substance: CEFDINIR
  22. EVISTA [Concomitant]
     Active Substance: RALOXIFENE HYDROCHLORIDE
  23. ZINC [Concomitant]
     Active Substance: ZINC\ZINC CHLORIDE
  24. LIDOCAINE. [Concomitant]
     Active Substance: LIDOCAINE
  25. EPIPEN [Concomitant]
     Active Substance: EPINEPHRINE
  26. HYDROCHLOROTHIAZIDE. [Concomitant]
     Active Substance: HYDROCHLOROTHIAZIDE
  27. OCUVITE [Concomitant]
     Active Substance: VITAMINS
  28. HYALURONIC ACID [Concomitant]
     Active Substance: HYALURONIC ACID
  29. HIZENTRA [Suspect]
     Active Substance: HUMAN IMMUNOGLOBULIN G
     Route: 058
  30. HIZENTRA [Suspect]
     Active Substance: HUMAN IMMUNOGLOBULIN G
     Indication: IMMUNODEFICIENCY COMMON VARIABLE
     Route: 058
  31. ACETAMINOPHEN. [Concomitant]
     Active Substance: ACETAMINOPHEN
  32. NEXIUM [Concomitant]
     Active Substance: ESOMEPRAZOLE MAGNESIUM
  33. CINNAMON. [Concomitant]
     Active Substance: CINNAMON
  34. ZETIA [Concomitant]
     Active Substance: EZETIMIBE
  35. VITAMIN B6 [Concomitant]
     Active Substance: PYRIDOXINE HYDROCHLORIDE
  36. LOVAZA [Concomitant]
     Active Substance: OMEGA-3-ACID ETHYL ESTERS

REACTIONS (2)
  - Ear pain [Recovered/Resolved]
  - Headache [Recovered/Resolved]
